FAERS Safety Report 10442659 (Version 2)
Quarter: 2014Q3

REPORT INFORMATION
  Report Type: Spontaneous
  Country: PL (occurrence: None)
  Receive Date: 20140908
  Receipt Date: 20140917
  Transmission Date: 20150326
  Serious: Yes (Hospitalization, Other)
  Sender: FDA-Public Use
  Company Number: ADR-2014-01598

PATIENT
  Age: 49 Year
  Sex: Female
  Weight: 87 kg

DRUGS (9)
  1. SIRDALUD [Suspect]
     Active Substance: TIZANIDINE
  2. ENARENAL [Suspect]
     Active Substance: ENALAPRIL
  3. VENLAFAXINE [Suspect]
     Active Substance: VENLAFAXINE HYDROCHLORIDE
  4. VENLECTINE [Suspect]
     Active Substance: VENLAFAXINE HYDROCHLORIDE
     Indication: AFFECTIVE DISORDER
     Route: 048
     Dates: start: 20110601
  5. GILENYA [Suspect]
     Active Substance: FINGOLIMOD HYDROCHLORIDE
     Indication: MULTIPLE SCLEROSIS
     Route: 048
     Dates: start: 20090630, end: 20130911
  6. BISOCARD [Suspect]
     Active Substance: BISOPROLOL
     Indication: HEART RATE ABNORMAL
     Route: 048
     Dates: start: 20100903
  7. TRIBUX [Suspect]
     Active Substance: TRIMEBUTINE
  8. BACLOFEN. [Suspect]
     Active Substance: BACLOFEN
     Indication: MUSCLE SPASTICITY
     Route: 048
     Dates: start: 20110120
  9. LERIVON [Suspect]
     Active Substance: MIANSERIN HYDROCHLORIDE
     Indication: AFFECTIVE DISORDER
     Route: 048
     Dates: start: 20100816

REACTIONS (7)
  - Erythema [None]
  - Dermatitis artefacta [None]
  - Blister [None]
  - Lichen planus [None]
  - Multiple sclerosis relapse [None]
  - Pyoderma [None]
  - Pruritus [None]
